FAERS Safety Report 20214822 (Version 6)
Quarter: 2022Q1

REPORT INFORMATION
  Report Type: Report from Study
  Country: KR (occurrence: KR)
  Receive Date: 20211222
  Receipt Date: 20220314
  Transmission Date: 20220423
  Serious: Yes (Other)
  Sender: FDA-Public Use
  Company Number: KR-BRISTOL-MYERS SQUIBB COMPANY-BMS-2021-100172

PATIENT
  Age: 52 Year
  Sex: Female
  Weight: 55.85 kg

DRUGS (4)
  1. IPILIMUMAB [Suspect]
     Active Substance: IPILIMUMAB
     Indication: Renal cell carcinoma
     Dosage: CYCLE 1 AND CYCLE 2, 1MG/KG (ABOUT 55.85)
     Route: 065
     Dates: start: 20210723, end: 20210813
  2. IPILIMUMAB [Suspect]
     Active Substance: IPILIMUMAB
     Dosage: 100/20 MG/ML ONCE (CYCLE 3 AND CYCLE 4)
     Route: 042
     Dates: start: 20210915, end: 20211006
  3. OPDIVO [Suspect]
     Active Substance: NIVOLUMAB
     Indication: Renal cell carcinoma
     Dosage: 3MG/KG(ABOUT 167.55MG)
     Route: 065
     Dates: end: 20210903
  4. OPDIVO [Suspect]
     Active Substance: NIVOLUMAB
     Dosage: 200/20 MG ONCE
     Route: 042
     Dates: start: 20210915, end: 20211006

REACTIONS (1)
  - Drug-induced liver injury [Recovered/Resolved]

NARRATIVE: CASE EVENT DATE: 20210830
